FAERS Safety Report 9492470 (Version 1)
Quarter: 2013Q3

REPORT INFORMATION
  Report Type: Spontaneous
  Country: GB (occurrence: GB)
  Receive Date: 20130830
  Receipt Date: 20130830
  Transmission Date: 20140515
  Serious: Yes (Hospitalization, Other)
  Sender: FDA-Public Use
  Company Number: GB-PFIZER INC-2013246432

PATIENT
  Age: 68 Year
  Sex: Male

DRUGS (4)
  1. LANSOPRAZOLE [Suspect]
     Dosage: 30 MG, 1X/DAY
  2. LANSOPRAZOLE [Interacting]
     Dosage: 60 MG, 1X/DAY
  3. DOXYCYCLINE MONOHYDRATE [Interacting]
     Indication: INFECTIVE EXACERBATION OF CHRONIC OBSTRUCTIVE AIRWAYS DISEASE
     Dosage: 100 MG, 1X/DAY (ACUTE COURSE)
     Route: 048
  4. WARFARIN [Interacting]
     Dosage: UNK

REACTIONS (2)
  - International normalised ratio increased [Recovered/Resolved]
  - Drug interaction [Unknown]
